FAERS Safety Report 21765524 (Version 2)
Quarter: 2022Q4

REPORT INFORMATION
  Report Type: Spontaneous
  Country: US (occurrence: US)
  Receive Date: 20221222
  Receipt Date: 20221226
  Transmission Date: 20230113
  Serious: Yes (Life-Threatening, Hospitalization, Other)
  Sender: FDA-Public Use
  Company Number: US-BoehringerIngelheim-2022-BI-209342

PATIENT
  Age: 79 Year
  Sex: Female

DRUGS (1)
  1. JARDIANCE [Suspect]
     Active Substance: EMPAGLIFLOZIN
     Indication: Product used for unknown indication
     Route: 048

REACTIONS (12)
  - Rheumatoid arthritis [Unknown]
  - Osteoporosis [Unknown]
  - Intervertebral disc disorder [Unknown]
  - Myocardial infarction [Unknown]
  - Liver disorder [Unknown]
  - Renal failure [Unknown]
  - Diabetes mellitus [Unknown]
  - Neoplasm malignant [Unknown]
  - Crying [Unknown]
  - Cardiac disorder [Unknown]
  - Thyroid disorder [Unknown]
  - Stress [Unknown]
